FAERS Safety Report 22541862 (Version 1)
Quarter: 2023Q2

REPORT INFORMATION
  Report Type: Spontaneous
  Country: US (occurrence: US)
  Receive Date: 20230609
  Receipt Date: 20230609
  Transmission Date: 20230721
  Serious: No
  Sender: FDA-Public Use
  Company Number: US-BAYER-2023A079062

PATIENT

DRUGS (1)
  1. ALEVE [Suspect]
     Active Substance: NAPROXEN SODIUM
     Indication: Product used for unknown indication
     Dosage: TAKE TWO IN THE MORNING AND TWO BEFORE BED
     Route: 065

REACTIONS (2)
  - Extra dose administered [Unknown]
  - Incorrect product administration duration [Unknown]
